FAERS Safety Report 12505692 (Version 1)
Quarter: 2016Q2

REPORT INFORMATION
  Report Type: Spontaneous
  Country: US (occurrence: US)
  Receive Date: 20160628
  Receipt Date: 20160628
  Transmission Date: 20160815
  Serious: No
  Sender: FDA-Public Use
  Company Number: US-PFIZER INC-2016291238

PATIENT
  Age: 57 Year
  Sex: Female
  Weight: 59 kg

DRUGS (2)
  1. GABAPENTIN. [Suspect]
     Active Substance: GABAPENTIN
     Dosage: 300 MG, 3X/DAY
     Route: 048
     Dates: start: 2014, end: 20160605
  2. GABAPENTIN. [Suspect]
     Active Substance: GABAPENTIN
     Dosage: 800 MG, 3X/DAY
     Route: 048
     Dates: start: 2010, end: 2012

REACTIONS (8)
  - Drug withdrawal syndrome [Unknown]
  - Vomiting [Unknown]
  - Dizziness [Unknown]
  - Visual acuity reduced [Unknown]
  - Headache [Unknown]
  - Feeling abnormal [Unknown]
  - Nausea [Unknown]
  - Malaise [Not Recovered/Not Resolved]

NARRATIVE: CASE EVENT DATE: 2012
